FAERS Safety Report 17152816 (Version 2)
Quarter: 2020Q1

REPORT INFORMATION
  Report Type: Spontaneous
  Country: US (occurrence: US)
  Receive Date: 20191213
  Receipt Date: 20200110
  Transmission Date: 20200409
  Serious: Yes (Other)
  Sender: FDA-Public Use
  Company Number: US-ASTRAZENECA-2019SF64354

PATIENT
  Age: 80 Year
  Sex: Female
  Weight: 85.3 kg

DRUGS (7)
  1. FERREX [Concomitant]
     Active Substance: FERRIC POLYSACCHARIDE COMPLEX
     Dosage: BEFORE MEALS
     Route: 058
  2. BYDUREON BCISE [Suspect]
     Active Substance: EXENATIDE
     Indication: BLOOD GLUCOSE ABNORMAL
     Route: 058
     Dates: start: 201909
  3. NEXIUM 24HR [Suspect]
     Active Substance: ESOMEPRAZOLE MAGNESIUM
     Route: 048
  4. METFORMIN [Concomitant]
     Active Substance: METFORMIN HYDROCHLORIDE
     Dosage: BEFORE MEALS
     Route: 058
  5. ROSUVASTATIN. [Suspect]
     Active Substance: ROSUVASTATIN
     Route: 048
  6. NOVOLOG [Concomitant]
     Active Substance: INSULIN ASPART
     Indication: BLOOD INSULIN
     Dosage: BEFORE MEALS
     Route: 058
  7. TOUJEO [Concomitant]
     Active Substance: INSULIN GLARGINE
     Indication: BLOOD INSULIN
     Dosage: BEFORE MEALS
     Route: 058

REACTIONS (15)
  - Mitral valve prolapse [Unknown]
  - Rhinorrhoea [Unknown]
  - Essential hypertension [Unknown]
  - Fibrocystic breast disease [Unknown]
  - Irritable bowel syndrome [Unknown]
  - Anal cancer [Unknown]
  - Product use issue [Unknown]
  - Hyperlipidaemia [Unknown]
  - Cough [Unknown]
  - Stress urinary incontinence [Unknown]
  - Product dose omission [Unknown]
  - Gastrooesophageal reflux disease [Unknown]
  - Nasopharyngitis [Recovered/Resolved]
  - Anxiety [Unknown]
  - Malaise [Unknown]

NARRATIVE: CASE EVENT DATE: 201909
